FAERS Safety Report 11572400 (Version 2)
Quarter: 2015Q4

REPORT INFORMATION
  Report Type: Spontaneous
  Country: DE (occurrence: DE)
  Receive Date: 20150929
  Receipt Date: 20151006
  Transmission Date: 20160304
  Serious: Yes (Other)
  Sender: FDA-Public Use
  Company Number: DE-BAYER-2015-429161

PATIENT
  Age: 34 Year
  Sex: Female

DRUGS (1)
  1. MIRENA [Suspect]
     Active Substance: LEVONORGESTREL
     Indication: CONTRACEPTION
     Dosage: 20 MCG/24HR, CONT
     Route: 015
     Dates: start: 20020828, end: 20060714

REACTIONS (15)
  - Loss of libido [None]
  - Skin disorder [None]
  - Mood swings [Recovered/Resolved]
  - Dizziness [Recovered/Resolved]
  - Panic attack [None]
  - Weight increased [None]
  - Depression [None]
  - Breast cyst [None]
  - Pruritus generalised [Recovered/Resolved]
  - Feeling of body temperature change [Recovered/Resolved]
  - Anxiety [None]
  - Nasal congestion [Recovered/Resolved]
  - Amenorrhoea [Recovered/Resolved]
  - Suicidal ideation [None]
  - Sensation of foreign body [Recovered/Resolved]

NARRATIVE: CASE EVENT DATE: 2003
